FAERS Safety Report 19873700 (Version 4)
Quarter: 2021Q4

REPORT INFORMATION
  Report Type: Spontaneous
  Country: US (occurrence: US)
  Receive Date: 20210923
  Receipt Date: 20211008
  Transmission Date: 20220303
  Serious: No
  Sender: FDA-Public Use
  Company Number: US-SANOFI-00772279

PATIENT
  Sex: Female

DRUGS (1)
  1. SELENIUM SULFIDE [Suspect]
     Active Substance: SELENIUM SULFIDE
     Dosage: UNK UNK, QD

REACTIONS (4)
  - Product odour abnormal [Unknown]
  - Product colour issue [Unknown]
  - Therapeutic response decreased [Unknown]
  - Unevaluable event [Unknown]
